FAERS Safety Report 24872214 (Version 1)
Quarter: 2025Q1

REPORT INFORMATION
  Report Type: Spontaneous
  Country: CA (occurrence: CA)
  Receive Date: 20250122
  Receipt Date: 20250122
  Transmission Date: 20250409
  Serious: Yes (Other)
  Sender: AMGEN
  Company Number: CA-AMGEN-CANSP2025009823

PATIENT
  Sex: Female

DRUGS (10)
  1. PROLIA [Suspect]
     Active Substance: DENOSUMAB
     Indication: Osteoporosis postmenopausal
     Dosage: 60 MILLIGRAM, Q6MO
     Route: 058
  2. PRUCALOPRIDE [Concomitant]
     Active Substance: PRUCALOPRIDE
     Route: 065
  3. AZOPT [Concomitant]
     Active Substance: BRINZOLAMIDE
     Route: 065
  4. LATANOPROST [Concomitant]
     Active Substance: LATANOPROST
     Route: 065
  5. CALCIUM [Concomitant]
     Active Substance: CALCIUM
     Route: 065
  6. MAGNESIUM [Concomitant]
     Active Substance: MAGNESIUM
     Route: 065
  7. COLLAGEN [Concomitant]
     Active Substance: COLLAGEN
     Route: 065
  8. VITAMIN D [Concomitant]
     Active Substance: VITAMIN D NOS
     Route: 065
  9. OSPHENA [Concomitant]
     Active Substance: OSPEMIFENE
     Indication: Atrophic vulvovaginitis
     Route: 065
  10. GLUTAMINE [Concomitant]
     Active Substance: GLUTAMINE
     Route: 065

REACTIONS (4)
  - Rheumatoid arthritis [Unknown]
  - Cystitis [Unknown]
  - Sciatica [Unknown]
  - Musculoskeletal pain [Unknown]
